FAERS Safety Report 20226128 (Version 4)
Quarter: 2022Q3

REPORT INFORMATION
  Report Type: Spontaneous
  Country: US (occurrence: US)
  Receive Date: 20211224
  Receipt Date: 20220721
  Transmission Date: 20221027
  Serious: No
  Sender: FDA-Public Use
  Company Number: US-ELI_LILLY_AND_COMPANY-US202112010930

PATIENT
  Age: 44 Year
  Sex: Female

DRUGS (6)
  1. VERZENIO [Suspect]
     Active Substance: ABEMACICLIB
     Indication: Breast cancer
     Dosage: 150 MG, BID
     Route: 048
     Dates: start: 202010
  2. VERZENIO [Suspect]
     Active Substance: ABEMACICLIB
     Indication: Breast cancer female
     Dosage: 150 MG, BID
     Route: 048
     Dates: start: 202010
  3. VERZENIO [Suspect]
     Active Substance: ABEMACICLIB
     Dosage: 150 MG, BID
     Route: 048
     Dates: start: 20210831
  4. VERZENIO [Suspect]
     Active Substance: ABEMACICLIB
     Dosage: 150 MG, BID
     Route: 048
     Dates: start: 20220512
  5. VERZENIO [Suspect]
     Active Substance: ABEMACICLIB
     Dosage: 150 MG, DAILY(ONLY IN THE EVENING)
     Route: 048
  6. VERZENIO [Suspect]
     Active Substance: ABEMACICLIB
     Dosage: 50 MG, DAILY
     Route: 048
     Dates: start: 20220619

REACTIONS (13)
  - COVID-19 [Recovered/Resolved]
  - Night sweats [Recovered/Resolved]
  - Choking [Recovered/Resolved]
  - Pneumonia [Recovered/Resolved]
  - Limb discomfort [Unknown]
  - Mobility decreased [Unknown]
  - Depression [Unknown]
  - Mental disorder [Unknown]
  - Dehydration [Recovering/Resolving]
  - Diarrhoea [Recovered/Resolved]
  - Diarrhoea [Recovering/Resolving]
  - Nausea [Recovered/Resolved]
  - Nausea [Not Recovered/Not Resolved]

NARRATIVE: CASE EVENT DATE: 20220101
